FAERS Safety Report 16838336 (Version 2)
Quarter: 2019Q3

REPORT INFORMATION
  Report Type: Report from Study
  Country: CA (occurrence: CA)
  Receive Date: 20190923
  Receipt Date: 20190924
  Transmission Date: 20191005
  Serious: Yes (Hospitalization)
  Sender: FDA-Public Use
  Company Number: CA-ROCHE-2419261

PATIENT
  Weight: 4.34 kg

DRUGS (2)
  1. CLONAZEPAM. [Suspect]
     Active Substance: CLONAZEPAM
     Indication: PRODUCT USED FOR UNKNOWN INDICATION
     Dosage: DOSE AT BIRTH 1 MG
     Route: 064
  2. PAROXETINE. [Suspect]
     Active Substance: PAROXETINE
     Indication: PRODUCT USED FOR UNKNOWN INDICATION
     Dosage: 3RD TRIMESTER PAROXETINE :20 MG, DOSE AT DELIVERY: 20 MG
     Route: 064

REACTIONS (4)
  - Neonatal respiratory distress [Recovered/Resolved]
  - Arrhythmia neonatal [Recovered/Resolved]
  - Foetal exposure during pregnancy [Unknown]
  - Ventricular extrasystoles [Recovered/Resolved]
